FAERS Safety Report 8816334 (Version 1)
Quarter: 2012Q4

REPORT INFORMATION
  Report Type: Spontaneous
  Country: US (occurrence: None)
  Receive Date: 20120927
  Receipt Date: 20120927
  Transmission Date: 20130627
  Serious: Yes (Death)
  Sender: FDA-Public Use
  Company Number: None

PATIENT
  Age: 69 Year
  Sex: Male
  Weight: 90.72 kg

DRUGS (1)
  1. AVASTIN [Suspect]
     Indication: LUNG CANCER
     Dates: start: 20110315, end: 20120501

REACTIONS (1)
  - Drug ineffective [None]
